FAERS Safety Report 6088845-6 (Version None)
Quarter: 2009Q1

REPORT INFORMATION
  Report Type: 
  Country: None (occurrence: None)
  Receive Date: 20090224
  Receipt Date: 20090213
  Transmission Date: 20090719
  Serious: Yes (Other)
  Sender: FDA-Public Use
  Company Number: PHBS2009GR00836

PATIENT
  Age: 54 Year
  Sex: Female

DRUGS (4)
  1. ZOLEDRONIC ACID [Suspect]
     Indication: MULTIPLE MYELOMA
     Dosage: 4 MG OVER 15 MINS EVERY 4 WEEKS
  2. DEXAMETHASONE TAB [Concomitant]
     Dosage: 40 MG FOR 4 DAYS EVERY 4 WEEKS
  3. THALIDOMIDE [Concomitant]
  4. BORTEZOMIB [Concomitant]

REACTIONS (2)
  - ORAL SURGERY [None]
  - OSTEONECROSIS [None]
